FAERS Safety Report 5422923-7 (Version None)
Quarter: 2007Q3

REPORT INFORMATION
  Report Type: 
  Country: None (occurrence: None)
  Receive Date: 20070822
  Receipt Date: 20070810
  Transmission Date: 20080115
  Serious: Yes (Hospitalization, Other)
  Sender: FDA-Public Use
  Company Number: DE-PFIZER INC-2007051567

PATIENT
  Sex: Female
  Weight: 66 kg

DRUGS (3)
  1. GENOTROPIN [Suspect]
     Indication: HYPOPITUITARISM
     Route: 058
     Dates: start: 20070530, end: 20070612
  2. HYDROCORTISON [Concomitant]
     Route: 048
     Dates: start: 20070530, end: 20070629
  3. LEVOTHYROXINE SODIUM [Concomitant]
     Route: 048

REACTIONS (3)
  - SHUNT MALFUNCTION [None]
  - SYNCOPE [None]
  - TYPE 2 DIABETES MELLITUS [None]
